FAERS Safety Report 6179754-2 (Version None)
Quarter: 2009Q2

REPORT INFORMATION
  Report Type: 
  Country: None (occurrence: None)
  Receive Date: 20090505
  Receipt Date: 20090429
  Transmission Date: 20091009
  Serious: Yes (Life-Threatening, Other)
  Sender: FDA-Public Use
  Company Number: RS-BRISTOL-MYERS SQUIBB COMPANY-14608095

PATIENT
  Age: 66 Year
  Weight: 60 kg

DRUGS (3)
  1. VEPESID [Suspect]
     Indication: BRONCHIAL CARCINOMA
     Route: 042
  2. ALOXI [Concomitant]
     Dosage: INJECTION FORM
  3. DEXASONE [Concomitant]

REACTIONS (5)
  - ASPHYXIA [None]
  - CLONUS [None]
  - CYANOSIS CENTRAL [None]
  - LOSS OF CONSCIOUSNESS [None]
  - MICTURITION DISORDER [None]
